FAERS Safety Report 5345917-9 (Version None)
Quarter: 2007Q2

REPORT INFORMATION
  Report Type: 
  Country: None (occurrence: None)
  Receive Date: 20070605
  Receipt Date: 20070530
  Transmission Date: 20071010
  Serious: Yes (Other)
  Sender: FDA-Public Use
  Company Number: A0653935A

PATIENT
  Sex: Male

DRUGS (1)
  1. COREG CR [Suspect]
     Indication: DRUG USE FOR UNKNOWN INDICATION
     Dosage: 10MG PER DAY

REACTIONS (4)
  - ADVERSE EVENT [None]
  - CARDIAC ASSISTANCE DEVICE USER [None]
  - DIZZINESS [None]
  - LOSS OF CONSCIOUSNESS [None]
